FAERS Safety Report 12993401 (Version 2)
Quarter: 2016Q4

REPORT INFORMATION
  Report Type: Spontaneous
  Country: IR (occurrence: IR)
  Receive Date: 20161202
  Receipt Date: 20161216
  Transmission Date: 20170207
  Serious: Yes (Other)
  Sender: FDA-Public Use
  Company Number: IR-CONCORDIA PHARMACEUTICALS INC.-GSH201611-006114

PATIENT
  Age: 14 Year
  Sex: Female

DRUGS (5)
  1. METHYLPREDNISOLONE. [Suspect]
     Active Substance: METHYLPREDNISOLONE
     Indication: SYSTEMIC LUPUS ERYTHEMATOSUS
     Route: 065
  2. HYDROXYCHLOROQUINE [Suspect]
     Active Substance: HYDROXYCHLOROQUINE
     Indication: SYSTEMIC LUPUS ERYTHEMATOSUS
     Route: 065
  3. PREDNISOLONE. [Suspect]
     Active Substance: PREDNISOLONE
     Indication: SYSTEMIC LUPUS ERYTHEMATOSUS
     Route: 048
  4. DAPSONE. [Concomitant]
     Active Substance: DAPSONE
     Route: 065
  5. IMMUNOGLOBULIN [Concomitant]
     Active Substance: HUMAN IMMUNOGLOBULIN G
     Dosage: 1 G/KG
     Route: 042

REACTIONS (8)
  - Red blood cell sedimentation rate increased [Unknown]
  - Proteinuria [Unknown]
  - Double stranded DNA antibody positive [Unknown]
  - Lupus nephritis [Not Recovered/Not Resolved]
  - Condition aggravated [Unknown]
  - Systemic lupus erythematosus [Recovering/Resolving]
  - Drug resistance [Unknown]
  - Drug ineffective [Unknown]
